FAERS Safety Report 9059789 (Version 3)
Quarter: 2013Q4

REPORT INFORMATION
  Report Type: Spontaneous
  Country: BR (occurrence: BR)
  Receive Date: 20130212
  Receipt Date: 20131204
  Transmission Date: 20140711
  Serious: Yes (Other)
  Sender: FDA-Public Use
  Company Number: BR-JNJFOC-20130201902

PATIENT
  Age: 56 Year
  Sex: Male
  Weight: 78 kg

DRUGS (12)
  1. TRAMAL [Suspect]
     Indication: BACK PAIN
     Route: 065
     Dates: start: 20121224
  2. MORPHINE [Suspect]
     Indication: BACK PAIN
     Route: 065
     Dates: start: 20121224
  3. ARAVA [Suspect]
     Indication: PRODUCT USED FOR UNKNOWN INDICATION
     Route: 065
     Dates: start: 2003
  4. ARAVA [Suspect]
     Indication: PRODUCT USED FOR UNKNOWN INDICATION
     Route: 065
     Dates: start: 201301
  5. ENBREL [Suspect]
     Indication: RHEUMATOID ARTHRITIS
     Route: 058
     Dates: start: 2012
  6. ATENSINE [Concomitant]
     Indication: HYPERTENSION
     Route: 065
     Dates: start: 2008
  7. RASILEZ [Concomitant]
     Indication: HYPERTENSION
     Route: 065
     Dates: start: 2008
  8. ATENOLOL [Concomitant]
     Indication: HYPERTENSION
     Route: 065
     Dates: start: 2008
  9. METFORMIN [Concomitant]
     Indication: DIABETES MELLITUS
     Route: 065
     Dates: start: 2008
  10. TRYPTANOL [Concomitant]
     Indication: DEPRESSION
     Route: 065
     Dates: start: 2003
  11. INSULIN [Concomitant]
     Indication: DIABETES MELLITUS
     Route: 065
     Dates: start: 2008
  12. LORAX [Concomitant]
     Indication: DEPRESSION
     Route: 065

REACTIONS (11)
  - Pneumonia [Unknown]
  - Rheumatic disorder [Unknown]
  - Spinal disorder [Unknown]
  - Back pain [Unknown]
  - Feeling abnormal [Unknown]
  - Drug ineffective [Unknown]
  - Blood pressure increased [Unknown]
  - Influenza [Unknown]
  - Cough [Unknown]
  - Nasopharyngitis [Unknown]
  - Immunodeficiency [Unknown]
